FAERS Safety Report 7132400-3 (Version None)
Quarter: 2010Q4

REPORT INFORMATION
  Report Type: 
  Country: None (occurrence: None)
  Receive Date: 20101129
  Receipt Date: 20101129
  Transmission Date: 20110411
  Serious: Yes (Hospitalization)
  Sender: FDA-Public Use
  Company Number: None

PATIENT
  Age: 78 Year
  Sex: Male
  Weight: 73.7 kg

DRUGS (4)
  1. WARFARIN SODIUM [Suspect]
     Indication: HEART VALVE REPLACEMENT
     Dosage: 60 MG QWEEK PO
     Route: 048
     Dates: start: 19960628
  2. CEFTRIAXONE [Suspect]
  3. PIPERACILLIN AND TAZOBACTAM [Suspect]
  4. LEVOFLOXACIN [Suspect]

REACTIONS (6)
  - CEREBROVASCULAR ACCIDENT [None]
  - INTERNATIONAL NORMALISED RATIO INCREASED [None]
  - PNEUMONIA [None]
  - SUBDURAL HAEMATOMA [None]
  - TRANSIENT ISCHAEMIC ATTACK [None]
  - URINARY TRACT INFECTION [None]
